FAERS Safety Report 18724321 (Version 1)
Quarter: 2021Q1

REPORT INFORMATION
  Report Type: Spontaneous
  Country: US (occurrence: US)
  Receive Date: 20210110
  Receipt Date: 20210110
  Transmission Date: 20210419
  Serious: Yes (Life-Threatening)
  Sender: FDA-Public Use
  Company Number: None

PATIENT
  Age: 79 Year
  Sex: Female

DRUGS (10)
  1. OLMESARTAN [Concomitant]
     Active Substance: OLMESARTAN
     Dates: start: 20191203
  2. AMLODIPINE [Concomitant]
     Active Substance: AMLODIPINE BESYLATE
     Dates: start: 20191207
  3. AMOXICILLIN. [Concomitant]
     Active Substance: AMOXICILLIN
     Dates: start: 20201203
  4. METOPROLOL SUCCINATE ER [Concomitant]
     Active Substance: METOPROLOL SUCCINATE
     Dates: start: 20191125
  5. MORPHINE SULF ER [Concomitant]
     Dates: start: 20191104
  6. FUROSEMIDE. [Concomitant]
     Active Substance: FUROSEMIDE
     Dates: start: 20200610
  7. TOVIAZ [Suspect]
     Active Substance: FESOTERODINE FUMARATE
     Indication: BLADDER DISORDER
     Route: 048
     Dates: start: 20210107, end: 20210107
  8. OXYCODONE [Concomitant]
     Active Substance: OXYCODONE
     Dates: start: 20200307
  9. ALPRAZOLAM. [Concomitant]
     Active Substance: ALPRAZOLAM
     Dates: start: 20200610
  10. LEVOTHYROXINE. [Concomitant]
     Active Substance: LEVOTHYROXINE
     Dates: start: 20200815

REACTIONS (4)
  - Dysuria [None]
  - Lip swelling [None]
  - Dry mouth [None]
  - Swollen tongue [None]

NARRATIVE: CASE EVENT DATE: 20210107
